FAERS Safety Report 24685961 (Version 2)
Quarter: 2024Q4

REPORT INFORMATION
  Report Type: Spontaneous
  Country: US (occurrence: US)
  Receive Date: 20241202
  Receipt Date: 20241226
  Transmission Date: 20250114
  Serious: No
  Sender: PFIZER
  Company Number: US-PFIZER INC-PV202400153848

PATIENT
  Age: 69 Year
  Sex: Female

DRUGS (5)
  1. TUKYSA [Interacting]
     Active Substance: TUCATINIB
     Dosage: 50MG; 4 TABLETS TWICE DAILY
  2. WARFARIN [Interacting]
     Active Substance: WARFARIN
     Dosage: UNK
  3. OXYCODONE [Interacting]
     Active Substance: OXYCODONE
     Indication: Pain
     Dosage: UNK
  4. TRAMADOL [Interacting]
     Active Substance: TRAMADOL
     Indication: Pain
     Dosage: UNK
  5. PREDNISONE [Concomitant]
     Active Substance: PREDNISONE
     Dosage: UNK

REACTIONS (2)
  - Drug interaction [Unknown]
  - Illness [Unknown]
